FAERS Safety Report 8276061-9 (Version None)
Quarter: 2012Q2

REPORT INFORMATION
  Report Type: 
  Country: None (occurrence: None)
  Receive Date: 20120406
  Receipt Date: 20120327
  Transmission Date: 20120825
  Serious: Yes (Other)
  Sender: FDA-Public Use
  Company Number: 2012SP017014

PATIENT
  Age: 22 Year
  Sex: Female
  Weight: 72.1219 kg

DRUGS (1)
  1. IMPLANON [Suspect]
     Indication: CONTRACEPTION
     Dates: start: 20100713

REACTIONS (6)
  - ABORTION SPONTANEOUS [None]
  - THROMBOSIS [None]
  - DYSPNOEA [None]
  - PREGNANCY WITH IMPLANT CONTRACEPTIVE [None]
  - PELVIC PAIN [None]
  - MATERNAL EXPOSURE DURING PREGNANCY [None]
